FAERS Safety Report 6275375-1 (Version None)
Quarter: 2009Q3

REPORT INFORMATION
  Report Type: 
  Country: None (occurrence: None)
  Receive Date: 20090721
  Receipt Date: 20090713
  Transmission Date: 20100115
  Serious: Yes (Hospitalization)
  Sender: FDA-Public Use
  Company Number: US-GILEAD-2009-0022950

PATIENT
  Sex: Female
  Weight: 88.53 kg

DRUGS (16)
  1. LETAIRIS [Suspect]
     Indication: PULMONARY ARTERIAL HYPERTENSION
     Route: 048
     Dates: start: 20090422
  2. NEURONTIN [Concomitant]
  3. EVISTA [Concomitant]
  4. PHENYTOIN [Concomitant]
  5. DILANTIN [Concomitant]
  6. LIPITOR [Concomitant]
  7. DIOVAN HCT [Concomitant]
  8. CARAFATE [Concomitant]
  9. PANTOPRAZOLE SODIUM [Concomitant]
  10. CITRICAL +D [Concomitant]
  11. LEXAPRO [Concomitant]
  12. ASPIRIN [Concomitant]
  13. VITAMIN D [Concomitant]
  14. LOVAZA [Concomitant]
  15. ZETIA [Concomitant]
  16. FERREX [Concomitant]

REACTIONS (1)
  - GASTROINTESTINAL ULCER HAEMORRHAGE [None]
